FAERS Safety Report 4508936-8 (Version None)
Quarter: 2004Q4

REPORT INFORMATION
  Report Type: 
  Country: None (occurrence: None)
  Receive Date: 20041123
  Receipt Date: 20041029
  Transmission Date: 20050328
  Serious: Yes (Other)
  Sender: FDA-Public Use
  Company Number: NL-GLAXOSMITHKLINE-B0350529A

PATIENT
  Age: 32 Year
  Sex: Female

DRUGS (4)
  1. LAMOTRIGINE [Suspect]
     Indication: EPILEPSY
     Dosage: 25MG TWICE PER DAY
     Route: 065
     Dates: start: 20041006
  2. FURABID [Suspect]
     Indication: URINARY TRACT INFECTION
     Dosage: 100MG TWICE PER DAY
     Route: 065
     Dates: start: 20041026, end: 20041031
  3. KEPPRA [Concomitant]
     Dosage: 2000MG PER DAY
     Route: 065
     Dates: start: 20040924
  4. MICROGYNON 30 [Concomitant]
     Dosage: 1TAB PER DAY
     Dates: start: 20031126

REACTIONS (4)
  - CONDITION AGGRAVATED [None]
  - DRUG INTERACTION [None]
  - EPILEPSY [None]
  - URINARY TRACT INFECTION [None]
